FAERS Safety Report 24803583 (Version 5)
Quarter: 2025Q3

REPORT INFORMATION
  Report Type: Spontaneous
  Country: CA (occurrence: None)
  Receive Date: 20250103
  Receipt Date: 20250731
  Transmission Date: 20251021
  Serious: Yes (Death)
  Sender: ORION
  Company Number: CA-002147023-NVSC2024CA243856

PATIENT
  Age: 43 Year
  Sex: Female
  Weight: 68 kg

DRUGS (199)
  1. METHOTREXATE [Suspect]
     Active Substance: METHOTREXATE
     Indication: Rheumatoid arthritis
  2. METHOTREXATE [Suspect]
     Active Substance: METHOTREXATE
  3. METHOTREXATE [Suspect]
     Active Substance: METHOTREXATE
  4. METHOTREXATE [Suspect]
     Active Substance: METHOTREXATE
  5. METHOTREXATE [Suspect]
     Active Substance: METHOTREXATE
  6. METHOTREXATE [Suspect]
     Active Substance: METHOTREXATE
  7. METHOTREXATE [Suspect]
     Active Substance: METHOTREXATE
  8. METHOTREXATE [Suspect]
     Active Substance: METHOTREXATE
  9. ETANERCEPT [Suspect]
     Active Substance: ETANERCEPT
     Indication: Rheumatoid arthritis
  10. ETANERCEPT [Suspect]
     Active Substance: ETANERCEPT
  11. RITUXIMAB [Suspect]
     Active Substance: RITUXIMAB
     Indication: Rheumatoid arthritis
  12. RITUXIMAB [Suspect]
     Active Substance: RITUXIMAB
  13. RITUXIMAB [Suspect]
     Active Substance: RITUXIMAB
  14. LEUCOVORIN CALCIUM [Suspect]
     Active Substance: LEUCOVORIN CALCIUM
     Indication: Product used for unknown indication
  15. BUPIVACAINE HYDROCHLORIDE [Suspect]
     Active Substance: BUPIVACAINE HYDROCHLORIDE
     Indication: Rheumatoid arthritis
  16. BUPIVACAINE HYDROCHLORIDE [Suspect]
     Active Substance: BUPIVACAINE HYDROCHLORIDE
  17. HYDROCORTISONE [Suspect]
     Active Substance: HYDROCORTISONE
     Indication: Rheumatoid arthritis
  18. HYDROCORTISONE [Suspect]
     Active Substance: HYDROCORTISONE
  19. HYDROCORTISONE [Suspect]
     Active Substance: HYDROCORTISONE
  20. HYDROCORTISONE [Suspect]
     Active Substance: HYDROCORTISONE
  21. HYDROMORPHONE HYDROCHLORIDE [Suspect]
     Active Substance: HYDROMORPHONE HYDROCHLORIDE
     Indication: Product used for unknown indication
  22. SOLU-MEDROL [Suspect]
     Active Substance: METHYLPREDNISOLONE SODIUM SUCCINATE
     Indication: Product used for unknown indication
  23. SULFASALAZINE [Suspect]
     Active Substance: SULFASALAZINE
     Indication: Rheumatoid arthritis
  24. SULFASALAZINE [Suspect]
     Active Substance: SULFASALAZINE
  25. SULFASALAZINE [Suspect]
     Active Substance: SULFASALAZINE
  26. SULFASALAZINE [Suspect]
     Active Substance: SULFASALAZINE
  27. SULFASALAZINE [Suspect]
     Active Substance: SULFASALAZINE
  28. SULFASALAZINE [Suspect]
     Active Substance: SULFASALAZINE
  29. SULFASALAZINE [Suspect]
     Active Substance: SULFASALAZINE
  30. SULFASALAZINE [Suspect]
     Active Substance: SULFASALAZINE
  31. SULFASALAZINE [Suspect]
     Active Substance: SULFASALAZINE
  32. TOFACITINIB CITRATE [Suspect]
     Active Substance: TOFACITINIB CITRATE
     Indication: Rheumatoid arthritis
  33. AIMOVIG [Suspect]
     Active Substance: ERENUMAB-AOOE
     Indication: Product used for unknown indication
  34. OTEZLA [Suspect]
     Active Substance: APREMILAST
     Indication: Product used for unknown indication
  35. OTEZLA [Suspect]
     Active Substance: APREMILAST
  36. OTEZLA [Suspect]
     Active Substance: APREMILAST
  37. OTEZLA [Suspect]
     Active Substance: APREMILAST
  38. OTEZLA [Suspect]
     Active Substance: APREMILAST
  39. OTEZLA [Suspect]
     Active Substance: APREMILAST
  40. OTEZLA [Suspect]
     Active Substance: APREMILAST
  41. OTEZLA [Suspect]
     Active Substance: APREMILAST
  42. DICLOFENAC [Suspect]
     Active Substance: DICLOFENAC
     Indication: Product used for unknown indication
  43. DICLOFENAC [Suspect]
     Active Substance: DICLOFENAC
  44. ALENDRONIC ACID [Suspect]
     Active Substance: ALENDRONIC ACID
     Indication: Rheumatoid arthritis
  45. ALENDRONIC ACID [Suspect]
     Active Substance: ALENDRONIC ACID
  46. CANDESARTAN [Suspect]
     Active Substance: CANDESARTAN
     Indication: Rheumatoid arthritis
  47. CANDESARTAN [Suspect]
     Active Substance: CANDESARTAN
     Indication: Migraine
  48. COSENTYX [Suspect]
     Active Substance: SECUKINUMAB
     Indication: Product used for unknown indication
  49. LEFLUNOMIDE [Suspect]
     Active Substance: LEFLUNOMIDE
     Indication: Rheumatoid arthritis
  50. LEFLUNOMIDE [Suspect]
     Active Substance: LEFLUNOMIDE
  51. MYCOPHENOLATE MOFETIL [Suspect]
     Active Substance: MYCOPHENOLATE MOFETIL
     Indication: Product used for unknown indication
  52. OXYCODONE [Suspect]
     Active Substance: OXYCODONE
     Indication: Product used for unknown indication
  53. PANTOPRAZOLE [Suspect]
     Active Substance: PANTOPRAZOLE
     Indication: Product used for unknown indication
  54. PANTOPRAZOLE [Suspect]
     Active Substance: PANTOPRAZOLE
  55. QUETIAPINE [Suspect]
     Active Substance: QUETIAPINE
     Indication: Off label use
  56. QUETIAPINE [Suspect]
     Active Substance: QUETIAPINE
  57. ACETAMINOPHEN [Suspect]
     Active Substance: ACETAMINOPHEN
     Indication: Rheumatoid arthritis
  58. ACTEMRA [Suspect]
     Active Substance: TOCILIZUMAB
     Indication: Product used for unknown indication
  59. ACTEMRA [Suspect]
     Active Substance: TOCILIZUMAB
  60. ACTEMRA [Suspect]
     Active Substance: TOCILIZUMAB
  61. ACTEMRA [Suspect]
     Active Substance: TOCILIZUMAB
  62. ACTEMRA [Suspect]
     Active Substance: TOCILIZUMAB
  63. ACTEMRA [Suspect]
     Active Substance: TOCILIZUMAB
  64. ACTEMRA [Suspect]
     Active Substance: TOCILIZUMAB
  65. ACTEMRA [Suspect]
     Active Substance: TOCILIZUMAB
  66. ACTEMRA [Suspect]
     Active Substance: TOCILIZUMAB
  67. ACTEMRA [Suspect]
     Active Substance: TOCILIZUMAB
  68. ACTEMRA [Suspect]
     Active Substance: TOCILIZUMAB
  69. ACTEMRA [Suspect]
     Active Substance: TOCILIZUMAB
  70. ALFACALCIDOL [Suspect]
     Active Substance: ALFACALCIDOL
     Indication: Product used for unknown indication
  71. PREDNISONE [Suspect]
     Active Substance: PREDNISONE
     Indication: Rheumatoid arthritis
  72. ATOMOXETINE HYDROCHLORIDE [Suspect]
     Active Substance: ATOMOXETINE HYDROCHLORIDE
     Indication: Product used for unknown indication
  73. IMURAN [Suspect]
     Active Substance: AZATHIOPRINE
     Indication: Rheumatoid arthritis
  74. IMURAN [Suspect]
     Active Substance: AZATHIOPRINE
  75. IMURAN [Suspect]
     Active Substance: AZATHIOPRINE
  76. IMURAN [Suspect]
     Active Substance: AZATHIOPRINE
  77. IMURAN [Suspect]
     Active Substance: AZATHIOPRINE
  78. IMURAN [Suspect]
     Active Substance: AZATHIOPRINE
  79. BERINERT [Suspect]
     Active Substance: HUMAN C1-ESTERASE INHIBITOR
     Indication: Product used for unknown indication
  80. BERINERT [Suspect]
     Active Substance: HUMAN C1-ESTERASE INHIBITOR
  81. BETAMETHASONE [Suspect]
     Active Substance: BETAMETHASONE
     Indication: Product used for unknown indication
  82. BETAMETHASONE [Suspect]
     Active Substance: BETAMETHASONE
  83. BOTULINUM TOXIN TYPE A [Suspect]
     Active Substance: BOTULINUM TOXIN TYPE A
     Indication: Product used for unknown indication
  84. BUPRENORPHINE [Suspect]
     Active Substance: BUPRENORPHINE
     Indication: Product used for unknown indication
  85. BUPRENORPHINE [Suspect]
     Active Substance: BUPRENORPHINE
  86. CALCIUM GLUBIONATE [Suspect]
     Active Substance: CALCIUM GLUBIONATE
     Indication: Rheumatoid arthritis
  87. CALCIUM GLUBIONATE [Suspect]
     Active Substance: CALCIUM GLUBIONATE
  88. CELECOXIB [Suspect]
     Active Substance: CELECOXIB
     Indication: Rheumatoid arthritis
  89. CELECOXIB [Suspect]
     Active Substance: CELECOXIB
  90. CELECOXIB [Suspect]
     Active Substance: CELECOXIB
  91. CELECOXIB [Suspect]
     Active Substance: CELECOXIB
  92. CELECOXIB [Suspect]
     Active Substance: CELECOXIB
  93. CELECOXIB [Suspect]
     Active Substance: CELECOXIB
  94. CETIRIZINE [Suspect]
     Active Substance: CETIRIZINE HYDROCHLORIDE
     Indication: Rheumatoid arthritis
  95. CETIRIZINE [Suspect]
     Active Substance: CETIRIZINE HYDROCHLORIDE
  96. CETIRIZINE [Suspect]
     Active Substance: CETIRIZINE HYDROCHLORIDE
  97. CHLORHEXIDINE [Suspect]
     Active Substance: CHLORHEXIDINE
     Indication: Product used for unknown indication
  98. CHLORHEXIDINE [Suspect]
     Active Substance: CHLORHEXIDINE
  99. CHLORHEXIDINE [Suspect]
     Active Substance: CHLORHEXIDINE
  100. CHOLECALCIFEROL [Suspect]
     Active Substance: CHOLECALCIFEROL
     Indication: Product used for unknown indication
  101. CHOLECALCIFEROL [Suspect]
     Active Substance: CHOLECALCIFEROL
  102. CIMZIA [Suspect]
     Active Substance: CERTOLIZUMAB PEGOL
     Indication: Rheumatoid arthritis
  103. CIMZIA [Suspect]
     Active Substance: CERTOLIZUMAB PEGOL
     Indication: Psoriasis
  104. CIMZIA [Suspect]
     Active Substance: CERTOLIZUMAB PEGOL
  105. CIMZIA [Suspect]
     Active Substance: CERTOLIZUMAB PEGOL
  106. CIMZIA [Suspect]
     Active Substance: CERTOLIZUMAB PEGOL
  107. CIMZIA [Suspect]
     Active Substance: CERTOLIZUMAB PEGOL
  108. CIMZIA [Suspect]
     Active Substance: CERTOLIZUMAB PEGOL
  109. CIMZIA [Suspect]
     Active Substance: CERTOLIZUMAB PEGOL
  110. CORTISONE ACETATE [Suspect]
     Active Substance: CORTISONE ACETATE
     Indication: Rheumatoid arthritis
  111. CORTISONE ACETATE [Suspect]
     Active Substance: CORTISONE ACETATE
  112. CORTISONE ACETATE [Suspect]
     Active Substance: CORTISONE ACETATE
  113. CORTISONE ACETATE [Suspect]
     Active Substance: CORTISONE ACETATE
     Indication: Rheumatoid arthritis
  114. CORTISONE ACETATE [Suspect]
     Active Substance: CORTISONE ACETATE
  115. CORTISONE ACETATE [Suspect]
     Active Substance: CORTISONE ACETATE
  116. CYCLOBENZAPRINE [Suspect]
     Active Substance: CYCLOBENZAPRINE
     Indication: Product used for unknown indication
  117. DESOXIMETASONE [Suspect]
     Active Substance: DESOXIMETASONE
     Indication: Rheumatoid arthritis
  118. DESOXIMETASONE [Suspect]
     Active Substance: DESOXIMETASONE
  119. DOMPERIDONE [Suspect]
     Active Substance: DOMPERIDONE
     Indication: Product used for unknown indication
  120. DOMPERIDONE [Suspect]
     Active Substance: DOMPERIDONE
  121. DOXYCYCLINE HYCLATE [Suspect]
     Active Substance: DOXYCYCLINE HYCLATE
     Indication: Product used for unknown indication
  122. ERGOCALCIFEROL [Suspect]
     Active Substance: ERGOCALCIFEROL
     Indication: Product used for unknown indication
  123. ERGOCALCIFEROL [Suspect]
     Active Substance: ERGOCALCIFEROL
  124. FETZIMA [Suspect]
     Active Substance: LEVOMILNACIPRAN HYDROCHLORIDE
     Indication: Product used for unknown indication
  125. FETZIMA [Suspect]
     Active Substance: LEVOMILNACIPRAN HYDROCHLORIDE
  126. FINACEA [Suspect]
     Active Substance: AZELAIC ACID
     Indication: Product used for unknown indication
  127. FINACEA [Suspect]
     Active Substance: AZELAIC ACID
  128. FLUTICASONE [Suspect]
     Active Substance: FLUTICASONE
     Indication: Product used for unknown indication
  129. FLUTICASONE [Suspect]
     Active Substance: FLUTICASONE
  130. FOLIC ACID [Suspect]
     Active Substance: FOLIC ACID
     Indication: Rheumatoid arthritis
  131. FOLIC ACID [Suspect]
     Active Substance: FOLIC ACID
  132. HUMIRA [Suspect]
     Active Substance: ADALIMUMAB
     Indication: Rheumatoid arthritis
  133. HUMIRA [Suspect]
     Active Substance: ADALIMUMAB
  134. HUMIRA [Suspect]
     Active Substance: ADALIMUMAB
  135. HYDROXYCHLOROQUINE [Suspect]
     Active Substance: HYDROXYCHLOROQUINE
     Indication: Systemic lupus erythematosus
  136. HYDROXYCHLOROQUINE [Suspect]
     Active Substance: HYDROXYCHLOROQUINE
     Indication: Rheumatoid arthritis
  137. KEVZARA [Suspect]
     Active Substance: SARILUMAB
     Indication: Rheumatoid arthritis
  138. LAMOTRIGINE [Suspect]
     Active Substance: LAMOTRIGINE
     Indication: Product used for unknown indication
  139. LAMOTRIGINE [Suspect]
     Active Substance: LAMOTRIGINE
  140. CLIOQUINOL\FLUMETHASONE [Suspect]
     Active Substance: CLIOQUINOL\FLUMETHASONE
     Indication: Rheumatoid arthritis
  141. CLIOQUINOL\FLUMETHASONE [Suspect]
     Active Substance: CLIOQUINOL\FLUMETHASONE
  142. LYRICA [Suspect]
     Active Substance: PREGABALIN
     Indication: Product used for unknown indication
  143. LYRICA [Suspect]
     Active Substance: PREGABALIN
  144. MESALAMINE [Suspect]
     Active Substance: MESALAMINE
     Indication: Crohn^s disease
  145. MESALAMINE [Suspect]
     Active Substance: MESALAMINE
  146. MINOCYCLINE [Suspect]
     Active Substance: MINOCYCLINE HYDROCHLORIDE
     Indication: Rheumatoid arthritis
  147. MINOCYCLINE [Suspect]
     Active Substance: MINOCYCLINE HYDROCHLORIDE
  148. MYRBETRIQ [Suspect]
     Active Substance: MIRABEGRON
     Indication: Product used for unknown indication
     Dosage: EXTENDED-RELEASE
  149. NAPROXEN SODIUM [Suspect]
     Active Substance: NAPROXEN SODIUM
     Indication: Rheumatoid arthritis
  150. NUCALA [Suspect]
     Active Substance: MEPOLIZUMAB
     Indication: Product used for unknown indication
  151. ORENCIA [Suspect]
     Active Substance: ABATACEPT
     Indication: Rheumatoid arthritis
  152. ORENCIA [Suspect]
     Active Substance: ABATACEPT
  153. PERCOCET [Suspect]
     Active Substance: ACETAMINOPHEN\OXYCODONE HYDROCHLORIDE
     Indication: Product used for unknown indication
  154. PERCOCET [Suspect]
     Active Substance: ACETAMINOPHEN\OXYCODONE HYDROCHLORIDE
  155. PHENYLEPHRINE HYDROCHLORIDE [Suspect]
     Active Substance: PHENYLEPHRINE HYDROCHLORIDE
     Indication: Product used for unknown indication
  156. PHTHALYLSULFATHIAZOLE [Suspect]
     Active Substance: PHTHALYLSULFATHIAZOLE
     Indication: Rheumatoid arthritis
  157. PHTHALYLSULFATHIAZOLE [Suspect]
     Active Substance: PHTHALYLSULFATHIAZOLE
  158. PHTHALYLSULFATHIAZOLE [Suspect]
     Active Substance: PHTHALYLSULFATHIAZOLE
  159. PREDNISONE [Suspect]
     Active Substance: PREDNISONE
     Indication: Rheumatoid arthritis
  160. PREDNISONE [Suspect]
     Active Substance: PREDNISONE
  161. PREDNISONE [Suspect]
     Active Substance: PREDNISONE
  162. PREDNISONE [Suspect]
     Active Substance: PREDNISONE
  163. PSEUDOEPHEDRINE [Suspect]
     Active Substance: PSEUDOEPHEDRINE
     Indication: Rheumatoid arthritis
  164. PSEUDOEPHEDRINE [Suspect]
     Active Substance: PSEUDOEPHEDRINE
  165. PSEUDOEPHEDRINE [Suspect]
     Active Substance: PSEUDOEPHEDRINE
  166. RAMIPRIL [Suspect]
     Active Substance: RAMIPRIL
     Indication: Rheumatoid arthritis
  167. RANITIDINE [Suspect]
     Active Substance: RANITIDINE
     Indication: Product used for unknown indication
  168. RANITIDINE [Suspect]
     Active Substance: RANITIDINE
  169. CETIRIZINE HYDROCHLORIDE\PSEUDOEPHEDRINE HYDROCHLORIDE [Suspect]
     Active Substance: CETIRIZINE HYDROCHLORIDE\PSEUDOEPHEDRINE HYDROCHLORIDE
     Indication: Rheumatoid arthritis
  170. CETIRIZINE HYDROCHLORIDE\PSEUDOEPHEDRINE HYDROCHLORIDE [Suspect]
     Active Substance: CETIRIZINE HYDROCHLORIDE\PSEUDOEPHEDRINE HYDROCHLORIDE
  171. REMICADE [Suspect]
     Active Substance: INFLIXIMAB
     Indication: Rheumatoid arthritis
  172. REMICADE [Suspect]
     Active Substance: INFLIXIMAB
  173. REMICADE [Suspect]
     Active Substance: INFLIXIMAB
  174. REMICADE [Suspect]
     Active Substance: INFLIXIMAB
  175. RITUXAN [Suspect]
     Active Substance: RITUXIMAB
     Indication: Rheumatoid arthritis
  176. DIETARY SUPPLEMENT\HERBALS [Suspect]
     Active Substance: DIETARY SUPPLEMENT\HERBALS
     Indication: Product used for unknown indication
  177. SIMPONI [Suspect]
     Active Substance: GOLIMUMAB
     Indication: Rheumatoid arthritis
  178. SIMPONI [Suspect]
     Active Substance: GOLIMUMAB
  179. SIRUKUMAB [Suspect]
     Active Substance: SIRUKUMAB
     Indication: Product used for unknown indication
  180. TOPIRAMATE [Suspect]
     Active Substance: TOPIRAMATE
     Indication: Product used for unknown indication
  181. TOPIRAMATE [Suspect]
     Active Substance: TOPIRAMATE
  182. TRAZODONE [Suspect]
     Active Substance: TRAZODONE HYDROCHLORIDE
     Indication: Product used for unknown indication
  183. TRETINOIN [Suspect]
     Active Substance: TRETINOIN
     Indication: Product used for unknown indication
  184. VITAMIN C [Suspect]
     Active Substance: ASCORBIC ACID
     Indication: Product used for unknown indication
  185. VITAMIN C [Suspect]
     Active Substance: ASCORBIC ACID
  186. PREGABALIN [Suspect]
     Active Substance: PREGABALIN
     Indication: Product used for unknown indication
  187. CALCIUM [Suspect]
     Active Substance: CALCIUM
     Indication: Product used for unknown indication
  188. DICLOFENAC [Suspect]
     Active Substance: DICLOFENAC
     Indication: Product used for unknown indication
  189. ACETAMINOPHEN\TRAMADOL HYDROCHLORIDE [Suspect]
     Active Substance: ACETAMINOPHEN\TRAMADOL HYDROCHLORIDE
     Indication: Product used for unknown indication
  190. PREDNISOLONE [Suspect]
     Active Substance: PREDNISOLONE
     Indication: Product used for unknown indication
  191. HYDROCORTISONE [Suspect]
     Active Substance: HYDROCORTISONE
     Indication: Product used for unknown indication
  192. LEFLUNOMIDE [Suspect]
     Active Substance: LEFLUNOMIDE
     Indication: Product used for unknown indication
  193. LORAZEPAM [Concomitant]
     Active Substance: LORAZEPAM
  194. ATIVAN [Concomitant]
     Active Substance: LORAZEPAM
  195. CODEINE PHOSPHATE [Concomitant]
     Active Substance: CODEINE PHOSPHATE
  196. VASCEPA [Concomitant]
     Active Substance: ICOSAPENT ETHYL
  197. ZESTRIL [Concomitant]
     Active Substance: LISINOPRIL
  198. ZESTRIL [Concomitant]
     Active Substance: LISINOPRIL
  199. DESOGESTREL\ETHINYL ESTRADIOL [Concomitant]
     Active Substance: DESOGESTREL\ETHINYL ESTRADIOL

REACTIONS (6)
  - Off label use [Fatal]
  - Maternal exposure during pregnancy [Fatal]
  - Condition aggravated [Fatal]
  - Overlap syndrome [Fatal]
  - Inappropriate schedule of product administration [Unknown]
  - Overdose [Unknown]
